FAERS Safety Report 5506398-5 (Version None)
Quarter: 2007Q4

REPORT INFORMATION
  Report Type: 
  Country: None (occurrence: None)
  Receive Date: 20071101
  Receipt Date: 20071101
  Transmission Date: 20080405
  Serious: No
  Sender: FDA-Public Use
  Company Number: None

PATIENT
  Age: 53 Year
  Sex: Male
  Weight: 72.5755 kg

DRUGS (1)
  1. RISPERDAL [Suspect]
     Dosage: 4MG  TWICE A DAY

REACTIONS (1)
  - DYSKINESIA [None]
